FAERS Safety Report 5537854-1 (Version None)
Quarter: 2007Q4

REPORT INFORMATION
  Report Type: 
  Country: None (occurrence: None)
  Receive Date: 20071207
  Receipt Date: 20071126
  Transmission Date: 20080405
  Serious: Yes (Other)
  Sender: FDA-Public Use
  Company Number: CA-PFIZER INC-2007093421

PATIENT
  Sex: Male
  Weight: 77.6 kg

DRUGS (7)
  1. DETROL LA [Suspect]
     Indication: POLLAKIURIA
     Route: 048
     Dates: start: 20050217, end: 20071101
  2. ATENOLOL [Concomitant]
  3. LISINOPRIL [Concomitant]
  4. EXELON [Concomitant]
  5. SLOW-K [Concomitant]
  6. SIMVASTATIN [Concomitant]
  7. XATRAL [Concomitant]

REACTIONS (2)
  - UNRESPONSIVE TO STIMULI [None]
  - URINARY RETENTION [None]
